FAERS Safety Report 7858839-6 (Version None)
Quarter: 2011Q4

REPORT INFORMATION
  Report Type: 
  Country: None (occurrence: None)
  Receive Date: 20111027
  Receipt Date: 20111020
  Transmission Date: 20120403
  Serious: Yes (Hospitalization)
  Sender: FDA-Public Use
  Company Number: US-JNJFOC-20111001306

PATIENT
  Sex: Female
  Weight: 82.5 kg

DRUGS (16)
  1. METHOTREXATE [Concomitant]
     Route: 058
     Dates: start: 20111006
  2. FOSAMAX [Concomitant]
     Indication: OSTEOPOROSIS
     Route: 048
     Dates: start: 20070523
  3. VITAMIN D [Concomitant]
     Indication: NUTRITIONAL SUPPORT
     Dosage: 200 UNIT TWICE DAILY
     Route: 048
     Dates: start: 20030630
  4. E VITAMIN [Concomitant]
     Indication: NUTRITIONAL SUPPORT
     Dosage: 400 UNIT DAILY
     Route: 048
     Dates: start: 20061114
  5. FOLIC ACID [Concomitant]
     Indication: NUTRITIONAL SUPPORT
     Route: 048
     Dates: start: 20030602
  6. PREDNISONE [Concomitant]
     Indication: RHEUMATOID ARTHRITIS
     Route: 048
     Dates: start: 20110412
  7. METHOTREXATE [Concomitant]
     Indication: RHEUMATOID ARTHRITIS
     Route: 058
     Dates: start: 20060306, end: 20110902
  8. GOLIMUMAB [Suspect]
     Route: 058
     Dates: start: 20110622
  9. LISINOPRIL [Concomitant]
     Indication: HYPERTENSION
     Route: 048
     Dates: start: 20080811
  10. GOLIMUMAB [Suspect]
     Indication: RHEUMATOID ARTHRITIS
     Route: 058
     Dates: start: 20110914
  11. CALCIUM CARBONATE [Concomitant]
     Indication: NUTRITIONAL SUPPORT
     Route: 048
     Dates: start: 20030630
  12. EXTRA STRENGTH TYLENOL [Concomitant]
     Indication: RHEUMATOID ARTHRITIS
     Route: 048
     Dates: start: 20100105
  13. PRILOSEC [Concomitant]
     Indication: GASTROOESOPHAGEAL REFLUX DISEASE
     Route: 048
     Dates: start: 20110308
  14. LOVAZA [Concomitant]
     Indication: NUTRITIONAL SUPPORT
     Route: 048
     Dates: start: 20100320
  15. ASCORBIC ACID [Concomitant]
     Indication: NUTRITIONAL SUPPORT
     Route: 048
     Dates: start: 20110214
  16. HYDROCORTISONE [Concomitant]
     Route: 061
     Dates: start: 20110901

REACTIONS (1)
  - DEEP VEIN THROMBOSIS [None]
